FAERS Safety Report 4368862-4 (Version None)
Quarter: 2004Q2

REPORT INFORMATION
  Report Type: 
  Country: None (occurrence: None)
  Receive Date: 20040525
  Receipt Date: 20040513
  Transmission Date: 20050107
  Serious: Yes (Other)
  Sender: FDA-Public Use
  Company Number: 200403794

PATIENT
  Age: 18 Month
  Sex: Female
  Weight: 11.3399 kg

DRUGS (3)
  1. CONCENTRATED MOTRIN INFANTS' DROPS [Suspect]
     Indication: PYREXIA
     Dosage: 74.8 MG, ONCE, PO
     Route: 048
     Dates: start: 20040506, end: 20040506
  2. CEFZIL [Suspect]
     Indication: PNEUMONIA
     Dates: start: 20040506
  3. CHILDREN'S TYLENOL SUSPENSION PRODUCT [Concomitant]

REACTIONS (9)
  - DROOLING [None]
  - DRUG INEFFECTIVE [None]
  - HEADACHE [None]
  - HYPERSENSITIVITY [None]
  - INSOMNIA [None]
  - ORAL PAIN [None]
  - SCREAMING [None]
  - THROAT LESION [None]
  - TONGUE ULCERATION [None]
